FAERS Safety Report 21558211 (Version 1)
Quarter: 2022Q4

REPORT INFORMATION
  Report Type: Spontaneous
  Country: JP (occurrence: JP)
  Receive Date: 20221107
  Receipt Date: 20221107
  Transmission Date: 20230113
  Serious: Yes (Death, Life-Threatening, Hospitalization)
  Sender: FDA-Public Use
  Company Number: JP-STRIDES ARCOLAB LIMITED-2022SP014490

PATIENT
  Age: 16 Year
  Sex: Male

DRUGS (33)
  1. METHOTREXATE [Suspect]
     Active Substance: METHOTREXATE
     Indication: Precursor T-lymphoblastic lymphoma/leukaemia
     Dosage: 15 MILLIGRAM (15MG/BODY, RECEIVED ON DAY 8 AND 22 OF TREATMENT INITIATION; INJECTION)
     Route: 037
  2. METHOTREXATE [Suspect]
     Active Substance: METHOTREXATE
     Dosage: 15 MILLIGRAM (ON DAY 1 AND 8 AFTER 5WEEKS AND 3DAYS)
     Route: 037
  3. METHOTREXATE [Suspect]
     Active Substance: METHOTREXATE
     Dosage: 3000 MILLIGRAM/SQ. METER (RECEIVED ON DAY1 AND 8 AFTER 10WEEKS AND 1DAY OF INITIAL TREATMENT)
     Route: 065
  4. METHOTREXATE [Suspect]
     Active Substance: METHOTREXATE
     Dosage: 15 MILLIGRAM (15MG/BODY, RECEIVED ON DAY 2 AND 9 AFTER 10WEEKS AND 1DAYS OF INITIAL TREATMENT; INJEC
     Route: 037
  5. DOXORUBICIN [Suspect]
     Active Substance: DOXORUBICIN
     Indication: Precursor T-lymphoblastic lymphoma/leukaemia
     Dosage: 50 MILLIGRAM/SQ. METER (INITIALLY ON DAY 1 AS INITIAL TREATMENT)
     Route: 065
  6. DOXORUBICIN [Suspect]
     Active Substance: DOXORUBICIN
     Dosage: 40 MILLIGRAM/SQ. METER (RECEIVED ON DAY 1AND 15 AFTER 18WEEKS AND 6DAYS OF INITIAL TREATMENT)
     Route: 065
  7. DOXORUBICIN [Suspect]
     Active Substance: DOXORUBICIN
     Dosage: 35 MILLIGRAM/SQ. METER (RECEIVED ON DAY 2 AND 16 AFTER 18WEEKS AND 6DAYS OF INITIAL TREATMENT)
     Route: 065
  8. PREDNISOLONE [Suspect]
     Active Substance: PREDNISOLONE
     Indication: Precursor T-lymphoblastic lymphoma/leukaemia
     Dosage: 60 MILLIGRAM/SQ. METER (INITIALLY ON DAY 1 TO 5)
     Route: 065
  9. PREDNISOLONE [Suspect]
     Active Substance: PREDNISOLONE
     Dosage: 90 MILLIGRAM/SQ. METER (FROM DAY 1-5 AFTER 14WEEKS AND 3DAYS OF INITIAL TREATMENT)
     Route: 065
  10. DEXAMETHASONE [Suspect]
     Active Substance: DEXAMETHASONE
     Indication: Precursor T-lymphoblastic lymphoma/leukaemia
     Dosage: 3.3 MILLIGRAM (RECEIVED 3.3 MG/BODY ON DAY 8 AND 22 AS INITIAL TREATMENT; INJECTION)
     Route: 037
  11. DEXAMETHASONE [Suspect]
     Active Substance: DEXAMETHASONE
     Dosage: 3.3 MILLIGRAM (ON DAY1 AND 8 AFTER 5WEEKS AND 3DAYS)
     Route: 037
  12. DEXAMETHASONE [Suspect]
     Active Substance: DEXAMETHASONE
     Dosage: 3.3 MILLIGRAM, (THEN ON DAY 2 AND 9 AFTER 10WEEKS AND 1DAY OF INITIAL TREATMENT)
     Route: 037
  13. ETOPOSIDE [Suspect]
     Active Substance: ETOPOSIDE
     Indication: Precursor T-lymphoblastic lymphoma/leukaemia
     Dosage: 100 MILLIGRAM/SQ. METER (RECEIVED ON DAY17-19 AFTER 14WEEKS AND 3DAYS OF INITIAL TREATMENT)
     Route: 065
  14. ETOPOSIDE [Suspect]
     Active Substance: ETOPOSIDE
     Dosage: 15 MILLIGRAM/SQ. METER (RECEIVED ON DAY 9 AND 10 AFTER 22WEEKS OF TREATMENT INITIATION)
     Route: 065
  15. VINCRISTINE [Suspect]
     Active Substance: VINCRISTINE
     Indication: Precursor T-lymphoblastic lymphoma/leukaemia
     Dosage: 2 MILLIGRAM (2 MG/BODY ON DAY 1, 8, 14, 22 AND 29 OF TREATMENT INITIATION)
     Route: 065
  16. VINCRISTINE [Suspect]
     Active Substance: VINCRISTINE
     Dosage: 2 MILLIGRAM (ON DAY 1, 8, 15 AND 22 AFTER 14WEEKS AND 3DAYS)
     Route: 065
  17. VINCRISTINE [Suspect]
     Active Substance: VINCRISTINE
     Dosage: 2 MILLIGRAM (THEN ON DAY 1 AND 5 AFTER 18WEEKS AND 6DAYS OF INITIAL TREATMENT)
     Route: 065
  18. ASPARAGINASE [Suspect]
     Active Substance: ASPARAGINASE
     Indication: Precursor T-lymphoblastic lymphoma/leukaemia
     Dosage: UNK (6,000 U/M2 ON DAY 8, 10, 12, 14, 16, 18, 20 AND 22 OF TREATMENT INITIATION)
     Route: 065
  19. ASPARAGINASE [Suspect]
     Active Substance: ASPARAGINASE
     Dosage: UNK (5000 U/M2 ON DAY 8, 10 AND 12 AFTER 14WEEKS AND 3DAYS OF INITIAL TREATMENT)
     Route: 065
  20. PIRARUBICIN [Suspect]
     Active Substance: PIRARUBICIN
     Indication: Precursor T-lymphoblastic lymphoma/leukaemia
     Dosage: 25 MILLIGRAM/SQ. METER (ON DAY 1 AND 2 AFTER 5WEEKS AND 3DAYS OF INITIAL TREATMENT)
     Route: 065
  21. CYTARABINE [Suspect]
     Active Substance: CYTARABINE
     Indication: Precursor T-lymphoblastic lymphoma/leukaemia
     Dosage: 40 MILLIGRAM (40 MG/BODY ON DAY 8 AND 22 OF TREATMENT INITIATION)
     Route: 037
  22. CYTARABINE [Suspect]
     Active Substance: CYTARABINE
     Dosage: 75 MILLIGRAM/SQ. METER (RECEIVED ON DAY1-6 AND ON DAY 8-13 AFTER 5WEEKS AND 3DAYS OF INITIAL TREATME
     Route: 065
  23. CYTARABINE [Suspect]
     Active Substance: CYTARABINE
     Dosage: 40 MILLIGRAM (40 MG/BODY ON DAY1 AND 8 AFTER 5WEEKS AND 3DAYS)
     Route: 037
  24. CYTARABINE [Suspect]
     Active Substance: CYTARABINE
     Dosage: 40 MILLIGRAM (THEN ON DAY 2 AND 9 AFTER 10WEEKS AND 1DAY OF INITIAL TREATMENT)
     Route: 037
  25. MERCAPTOPURINE [Suspect]
     Active Substance: MERCAPTOPURINE
     Indication: Precursor T-lymphoblastic lymphoma/leukaemia
     Dosage: 50 MILLIGRAM/SQ. METER (RECEIVED ON DAY 1-14 AFTER 5WEEKS AND 3DAYS OF INITIAL TREATMENT)
     Route: 065
  26. CYCLOPHOSPHAMIDE [Suspect]
     Active Substance: CYCLOPHOSPHAMIDE
     Indication: Precursor T-lymphoblastic lymphoma/leukaemia
     Dosage: 750 MILLIGRAM/SQ. METER (RECEIVED ON DAY1 AS INITIAL TREATMENT)
     Route: 065
  27. CYCLOPHOSPHAMIDE [Suspect]
     Active Substance: CYCLOPHOSPHAMIDE
     Dosage: 750 MILLIGRAM/SQ. METER (ON DAY 1 AND 8 AFTER 5WEEKS AND 3DAYS)
     Route: 065
  28. CYCLOPHOSPHAMIDE [Suspect]
     Active Substance: CYCLOPHOSPHAMIDE
     Dosage: 750 MILLIGRAM/SQ. METER (THEN ON DAY 1 AFTER 14WEEKS AND 3DAYS OF INITIAL TREATMENT)
     Route: 065
  29. CYCLOPHOSPHAMIDE [Suspect]
     Active Substance: CYCLOPHOSPHAMIDE
     Dosage: 500 MILLIGRAM/SQ. METER (RECEIVED ON DAY 15-16 AFTER 14WEEKS AND 3DAYS AND ON DAY 1, 2 AND 15 AFTER
     Route: 065
  30. CYCLOPHOSPHAMIDE [Suspect]
     Active Substance: CYCLOPHOSPHAMIDE
     Dosage: 60 MILLIGRAM/KILOGRAM (RECEIVED ON DAY 7 AND 8 AFTER 22WEEKS OF INITIAL TREATMENT)
     Route: 065
  31. DAUNORUBICIN [Suspect]
     Active Substance: DAUNORUBICIN
     Indication: Precursor T-lymphoblastic lymphoma/leukaemia
     Dosage: 50 MILLIGRAM/SQ. METER (RECEIVED ON DAY1 AND 2 AFTER 14WEEKS AND 3DAYS OF INITIAL TREATMENT)
     Route: 065
  32. DAUNORUBICIN [Suspect]
     Active Substance: DAUNORUBICIN
     Dosage: 30 MILLIGRAM/SQ. METER (RECEIVED ON DAY 15-16 AFTER 14WEEKS AND 3DAYS OF INITIAL TREATMENT)
     Route: 065
  33. TACROLIMUS [Suspect]
     Active Substance: TACROLIMUS
     Indication: Allogenic stem cell transplantation
     Dosage: UNK (CONTINOUS IV)
     Route: 042

REACTIONS (8)
  - Drug ineffective [Fatal]
  - Therapy partial responder [Fatal]
  - Pneumothorax [Unknown]
  - Cardiac failure acute [Recovered/Resolved]
  - Pulmonary haemorrhage [Unknown]
  - Septic shock [Unknown]
  - Bacterial infection [Unknown]
  - Off label use [Unknown]
